FAERS Safety Report 8346689-6 (Version None)
Quarter: 2012Q2

REPORT INFORMATION
  Report Type: 
  Country: None (occurrence: None)
  Receive Date: 20120509
  Receipt Date: 20120507
  Transmission Date: 20120825
  Serious: Yes (Death, Other)
  Sender: FDA-Public Use
  Company Number: PHHY2011CR61819

PATIENT
  Sex: Female

DRUGS (2)
  1. ZOLEDRONOC ACID [Suspect]
     Indication: OSTEOPOROSIS
     Dosage: 5 MG, UNK
     Route: 042
  2. ENALAPRIL MALEATE [Concomitant]
     Dosage: UNK UKN, UNK

REACTIONS (5)
  - DEATH [None]
  - BLOOD GLUCOSE INCREASED [None]
  - SKIN ULCER [None]
  - PAIN IN EXTREMITY [None]
  - OEDEMA PERIPHERAL [None]
